FAERS Safety Report 9379704 (Version 1)
Quarter: 2013Q3

REPORT INFORMATION
  Report Type: Spontaneous
  Country: US (occurrence: US)
  Receive Date: 20130702
  Receipt Date: 20130702
  Transmission Date: 20140515
  Serious: No
  Sender: FDA-Public Use
  Company Number: US-BAYER-2013-080968

PATIENT
  Age: 56 Year
  Sex: Male
  Weight: 98 kg

DRUGS (5)
  1. ALEVE CAPLET [Suspect]
     Route: 048
  2. AMLODIPINE [Concomitant]
  3. CENTRUM [Concomitant]
  4. VITAMIN D [Concomitant]
  5. FISH OIL [Concomitant]

REACTIONS (1)
  - Incorrect dose administered [None]
